FAERS Safety Report 9720674 (Version 1)
Quarter: 2013Q4

REPORT INFORMATION
  Report Type: Report from Study
  Country: BR (occurrence: BR)
  Receive Date: 20131129
  Receipt Date: 20131129
  Transmission Date: 20140711
  Serious: Yes (Death, Hospitalization, Other)
  Sender: FDA-Public Use
  Company Number: PHHY2013BR136816

PATIENT
  Sex: Male

DRUGS (7)
  1. EXELON [Suspect]
     Indication: DEMENTIA ALZHEIMER^S TYPE
     Dosage: 5 MG, BID (IN THE MORNING AND IN THE NIGHT)
     Route: 048
     Dates: start: 200808, end: 200808
  2. EXELON PATCH [Suspect]
     Indication: DEMENTIA ALZHEIMER^S TYPE
     Dosage: 9.5 MG, ONCE A DAY (10 CM2)
     Route: 062
     Dates: start: 20080609
  3. EXELON PATCH [Suspect]
     Dosage: 4.6 MG, ONCE A DAY
     Route: 062
  4. EXELON PATCH [Suspect]
     Dosage: 9.5 MG, ONCE A DAY (10 CM2)
     Route: 062
     Dates: end: 201306
  5. MELHORAL INFANTIL [Suspect]
     Indication: BLOOD DISORDER
     Dosage: UNK
     Dates: start: 200812, end: 20130614
  6. SIMVASTATIN [Concomitant]
     Indication: ARRHYTHMIA
     Dosage: 5 MG
     Dates: start: 200812, end: 20130514
  7. LOSARTAN [Concomitant]
     Indication: FLUID RETENTION
     Dosage: UNK
     Dates: start: 200812, end: 20130514

REACTIONS (5)
  - Ischaemia [Fatal]
  - Renal impairment [Unknown]
  - Cerebrovascular accident [Unknown]
  - Myopia [Unknown]
  - Blood pressure increased [Unknown]
